FAERS Safety Report 16721236 (Version 2)
Quarter: 2019Q3

REPORT INFORMATION
  Report Type: Report from Study
  Country: TW (occurrence: TW)
  Receive Date: 20190820
  Receipt Date: 20190916
  Transmission Date: 20191005
  Serious: Yes (Hospitalization)
  Sender: FDA-Public Use
  Company Number: PHHY2016TW080120

PATIENT
  Age: 67 Year
  Sex: Male
  Weight: 78 kg

DRUGS (21)
  1. FLUCLORONIDE. [Concomitant]
     Active Substance: FLUCLORONIDE
     Indication: SEBORRHOEIC KERATOSIS
     Dosage: UNK
     Route: 061
     Dates: start: 20150708, end: 20150908
  2. FAMOTIDINE. [Concomitant]
     Active Substance: FAMOTIDINE
     Indication: GASTROINTESTINAL DISORDER PROPHYLAXIS
     Dosage: 20 MG, UNK
     Route: 048
     Dates: start: 20161101, end: 20161104
  3. LANSOPRAZOLE. [Concomitant]
     Active Substance: LANSOPRAZOLE
     Dosage: 30 MG, QD
     Route: 048
     Dates: start: 20150916, end: 20151223
  4. TAMSULOSIN HYDROCHLORIDE. [Concomitant]
     Active Substance: TAMSULOSIN HYDROCHLORIDE
     Dosage: 0.2 MG, LESS THAN 3 MONTHS BEFORE VISIT 1
     Route: 048
  5. CELEBREX [Concomitant]
     Active Substance: CELECOXIB
     Indication: INFECTION PROPHYLAXIS
     Dosage: 1 DF, UNK
     Route: 048
     Dates: start: 20161031, end: 20161107
  6. TASIGNA [Suspect]
     Active Substance: NILOTINIB
     Indication: CHRONIC MYELOID LEUKAEMIA
     Dosage: 600 MG, QD
     Route: 048
     Dates: start: 20140910
  7. FINASTERIDE. [Concomitant]
     Active Substance: FINASTERIDE
     Indication: BENIGN PROSTATIC HYPERPLASIA
     Dosage: 5 MG, LESS THAN 3 MONTHS BEFORE VISIT 1
     Route: 048
     Dates: end: 20141123
  8. LANSOPRAZOLE. [Concomitant]
     Active Substance: LANSOPRAZOLE
     Indication: DUODENAL ULCER
     Dosage: 30 MG, QD LESS THAN 3 MONTHS BEFORE VISIT 1
     Route: 048
     Dates: end: 20141030
  9. TAMSULOSIN [Concomitant]
     Active Substance: TAMSULOSIN
     Dosage: 0.4 MG, UNK
     Route: 048
     Dates: start: 20161012
  10. TAMSULOSIN HYDROCHLORIDE. [Concomitant]
     Active Substance: TAMSULOSIN HYDROCHLORIDE
     Indication: BENIGN PROSTATIC HYPERPLASIA
     Dosage: 0.2 MG, LESS THAN 3 MONTHS BEFORE VISIT 1
     Route: 048
     Dates: end: 20161011
  11. CEFADROXIL. [Concomitant]
     Active Substance: CEFADROXIL
     Indication: INFECTION PROPHYLAXIS
     Dosage: 500 MG, UNK
     Route: 048
     Dates: start: 20160428, end: 20160505
  12. DAILYCARE ACTIBEST [Concomitant]
     Indication: PROPHYLAXIS
     Dosage: 1 DF, UNK
     Route: 048
     Dates: start: 20161102, end: 20171218
  13. DAILYCARE ACTIBEST [Concomitant]
     Dosage: 1 DF, UNK
     Route: 048
     Dates: start: 20180604, end: 20190123
  14. FUROSEMIDE. [Concomitant]
     Active Substance: FUROSEMIDE
     Indication: PROPHYLAXIS
     Dosage: 20 MG, UNK
     Route: 048
     Dates: start: 20160603, end: 20160608
  15. MEBEVERINE [Concomitant]
     Active Substance: MEBEVERINE
     Indication: DUODENAL ULCER
     Dosage: 100 MG, UNK
     Route: 048
     Dates: start: 20150916, end: 20151223
  16. ULTRACET [Concomitant]
     Active Substance: ACETAMINOPHEN\TRAMADOL HYDROCHLORIDE
     Indication: CALCULUS URINARY
     Dosage: 1 DF, UNK
     Route: 048
     Dates: start: 20160421, end: 20160424
  17. MOPRIDE [Concomitant]
     Indication: DUODENAL ULCER
     Dosage: 5 MG, LESS THAN 3 MONTHS BEFORE VISIT 1
     Route: 048
     Dates: end: 20141030
  18. TRANEXAMIC ACID. [Concomitant]
     Active Substance: TRANEXAMIC ACID
     Indication: PROPHYLAXIS
     Dosage: 250 MG, UNK
     Route: 048
     Dates: start: 20160603, end: 20160608
  19. SODIUM PHOSPHATE MONOBASIC [Concomitant]
     Active Substance: SODIUM PHOSPHATE, MONOBASIC
     Indication: PROPHYLAXIS
     Dosage: 118 ML, UNK
     Route: 054
     Dates: start: 20160427, end: 20160427
  20. TAMSULOSIN [Concomitant]
     Active Substance: TAMSULOSIN
     Indication: BENIGN PROSTATIC HYPERPLASIA
     Dosage: 0.4 MG, UNK OCAS
     Route: 048
     Dates: start: 20160421, end: 20160424
  21. TRAMADOL. [Concomitant]
     Active Substance: TRAMADOL
     Indication: CALCULUS URINARY
     Dosage: 50 MG, UNK
     Route: 042
     Dates: start: 20160421, end: 20160421

REACTIONS (3)
  - Flank pain [Recovering/Resolving]
  - Ureterolithiasis [Recovered/Resolved]
  - Nephrolithiasis [Recovering/Resolving]

NARRATIVE: CASE EVENT DATE: 20160421
